FAERS Safety Report 9490295 (Version 1)
Quarter: 2013Q3

REPORT INFORMATION
  Report Type: Spontaneous
  Country: US (occurrence: US)
  Receive Date: 20130830
  Receipt Date: 20130830
  Transmission Date: 20140515
  Serious: No
  Sender: FDA-Public Use
  Company Number: US-009507513-1308USA010510

PATIENT
  Age: 20 Year
  Sex: Female
  Weight: 45.35 kg

DRUGS (2)
  1. IMPLANON [Suspect]
     Indication: CONTRACEPTION
     Dosage: UNK
     Route: 059
     Dates: start: 200801
  2. IMPLANON [Suspect]
     Dosage: UPPER LEFT ARM
     Route: 059
     Dates: start: 201101

REACTIONS (7)
  - Laparoscopy [Unknown]
  - Uterine dilation and curettage [Unknown]
  - Benign breast neoplasm [Not Recovered/Not Resolved]
  - Bleeding time prolonged [Not Recovered/Not Resolved]
  - Ovarian cyst [Not Recovered/Not Resolved]
  - Polycystic ovaries [Not Recovered/Not Resolved]
  - Blood calcium increased [Not Recovered/Not Resolved]
